FAERS Safety Report 13745329 (Version 1)
Quarter: 2017Q3

REPORT INFORMATION
  Report Type: Spontaneous
  Country: None (occurrence: US)
  Receive Date: 20170711
  Receipt Date: 20170711
  Transmission Date: 20171127
  Serious: No
  Sender: FDA-Public Use
  Company Number: None

PATIENT
  Sex: Male

DRUGS (1)
  1. ZYTIGA [Suspect]
     Active Substance: ABIRATERONE ACETATE
     Indication: PROSTATE CANCER STAGE 0
     Route: 048
     Dates: start: 20170307

REACTIONS (4)
  - Chest pain [None]
  - Dyspnoea [None]
  - Amnesia [None]
  - Pain in extremity [None]
